FAERS Safety Report 6688741-7 (Version None)
Quarter: 2010Q2

REPORT INFORMATION
  Report Type: 
  Country: None (occurrence: None)
  Receive Date: 20100420
  Receipt Date: 20100409
  Transmission Date: 20101027
  Serious: Yes (Hospitalization)
  Sender: FDA-Public Use
  Company Number: B0643320A

PATIENT
  Age: 4 Year
  Sex: Female

DRUGS (1)
  1. ZINNAT [Suspect]
     Indication: UPPER RESPIRATORY TRACT INFECTION
     Dosage: 20MGK PER DAY
     Route: 048
     Dates: start: 20071001

REACTIONS (15)
  - ABDOMINAL DISTENSION [None]
  - APATHY [None]
  - ASPARTATE AMINOTRANSFERASE INCREASED [None]
  - BODY TEMPERATURE INCREASED [None]
  - CLOSTRIDIUM DIFFICILE COLITIS [None]
  - DECREASED APPETITE [None]
  - DIARRHOEA [None]
  - ENTEROCOLITIS [None]
  - FLATULENCE [None]
  - GASTROENTERITIS [None]
  - GASTROINTESTINAL HYPERMOTILITY [None]
  - NAUSEA [None]
  - PETECHIAE [None]
  - SOMNOLENCE [None]
  - VOMITING [None]
